FAERS Safety Report 9676990 (Version 1)
Quarter: 2013Q4

REPORT INFORMATION
  Report Type: Spontaneous
  Country: US (occurrence: US)
  Receive Date: 20131108
  Receipt Date: 20131108
  Transmission Date: 20140711
  Serious: No
  Sender: FDA-Public Use
  Company Number: US-009507513-1311USA001219

PATIENT
  Sex: 0

DRUGS (1)
  1. DULERA [Suspect]
     Dosage: ORAL INHALATION, 200 MCG/ 5 MCG, TWO PUFFS, TWICE DAILY
     Route: 055

REACTIONS (3)
  - Drug dose omission [Unknown]
  - Product quality issue [Unknown]
  - No adverse event [Unknown]
